FAERS Safety Report 23969015 (Version 1)
Quarter: 2024Q2

REPORT INFORMATION
  Report Type: Spontaneous
  Country: US (occurrence: US)
  Receive Date: 20240612
  Receipt Date: 20240612
  Transmission Date: 20240716
  Serious: No
  Sender: FDA-Public Use
  Company Number: US-RIGEL Pharmaceuticals, INC-2024FOS000044

PATIENT
  Age: 70 Year
  Sex: Male
  Weight: 88.435 kg

DRUGS (8)
  1. TAVALISSE [Suspect]
     Active Substance: FOSTAMATINIB
     Indication: Autoimmune haemolytic anaemia
     Dosage: 100 MG, BID
     Route: 048
     Dates: start: 20230127
  2. PREDNISONE [Concomitant]
     Active Substance: PREDNISONE
     Indication: Product used for unknown indication
     Dosage: 10 MG, QOD
  3. PREDNISONE [Concomitant]
     Active Substance: PREDNISONE
     Dosage: 5 MG, QOD
  4. PLAQUENIL [Concomitant]
     Active Substance: HYDROXYCHLOROQUINE SULFATE
     Indication: Product used for unknown indication
     Dosage: 200 MG, QD
  5. PANTOPRAZOLE [Concomitant]
     Active Substance: PANTOPRAZOLE
     Indication: Product used for unknown indication
     Dosage: 20 MG, BID
  6. AZATHIOPRINE [Concomitant]
     Active Substance: AZATHIOPRINE
     Indication: Product used for unknown indication
     Dosage: 50 MG, QD
  7. LISINOPRIL [Concomitant]
     Active Substance: LISINOPRIL
     Indication: Product used for unknown indication
     Dosage: 20 MG, QD
  8. AMLODIPINE [Concomitant]
     Active Substance: AMLODIPINE BESYLATE
     Indication: Product used for unknown indication
     Dosage: 5 MG, QD

REACTIONS (4)
  - COVID-19 [Unknown]
  - Sinusitis [Unknown]
  - Haemoglobin decreased [Unknown]
  - Off label use [Unknown]

NARRATIVE: CASE EVENT DATE: 20231201
